FAERS Safety Report 5527500-5 (Version None)
Quarter: 2007Q4

REPORT INFORMATION
  Report Type: 
  Country: None (occurrence: None)
  Receive Date: 20071128
  Receipt Date: 20071126
  Transmission Date: 20080405
  Serious: Yes (Death, Hospitalization, Other)
  Sender: FDA-Public Use
  Company Number: FR-BRISTOL-MYERS SQUIBB COMPANY-13992748

PATIENT
  Age: 61 Year
  Sex: Female

DRUGS (6)
  1. TAXOL [Suspect]
     Route: 042
  2. AVASTIN [Suspect]
     Route: 042
  3. RANITIDINE HCL [Concomitant]
  4. SOLU-MEDROL [Concomitant]
     Route: 042
  5. ARIMIDEX [Concomitant]
  6. ACTISKENAN [Concomitant]
     Indication: PAIN

REACTIONS (2)
  - HEPATIC ENCEPHALOPATHY [None]
  - HYPOGLYCAEMIA [None]
